FAERS Safety Report 5017898-9 (Version None)
Quarter: 2006Q2

REPORT INFORMATION
  Report Type: 
  Country: None (occurrence: None)
  Receive Date: 20060605
  Receipt Date: 20060525
  Transmission Date: 20061013
  Serious: Yes (Other)
  Sender: FDA-Public Use
  Company Number: PHFR2006GB01818

PATIENT
  Age: 40 Year
  Sex: Male

DRUGS (1)
  1. NEORAL [Suspect]
     Indication: PSORIASIS
     Dosage: 150 MG MANE, 100 MG NOCTE
     Route: 048

REACTIONS (1)
  - SUPRAVENTRICULAR TACHYCARDIA [None]
